FAERS Safety Report 6183031-3 (Version None)
Quarter: 2009Q2

REPORT INFORMATION
  Report Type: 
  Country: None (occurrence: None)
  Receive Date: 20090507
  Receipt Date: 20081126
  Transmission Date: 20091009
  Serious: Yes (Hospitalization)
  Sender: FDA-Public Use
  Company Number: BR-PFIZER INC-2008100462

PATIENT
  Age: 20 Year

DRUGS (1)
  1. DETRUSITOL LA [Suspect]

REACTIONS (4)
  - ANAPHYLACTIC SHOCK [None]
  - HYPOTENSION [None]
  - MALAISE [None]
  - STEVENS-JOHNSON SYNDROME [None]
